FAERS Safety Report 4746061-1 (Version None)
Quarter: 2005Q3

REPORT INFORMATION
  Report Type: 
  Country: None (occurrence: None)
  Receive Date: 20050816
  Receipt Date: 20050811
  Transmission Date: 20060218
  Serious: Yes (Disabling)
  Sender: FDA-Public Use
  Company Number: CA-JNJFOC-20050803312

PATIENT
  Sex: Female
  Weight: 73.03 kg

DRUGS (9)
  1. LEVAQUIN [Suspect]
     Indication: COUGH
     Route: 048
  2. WATER PILLS [Concomitant]
  3. ALLOPURINOL [Concomitant]
  4. HYZAAR [Concomitant]
  5. HYZAAR [Concomitant]
  6. DIGOXIN [Concomitant]
  7. IMDUR [Concomitant]
  8. SIMVASTATIN [Concomitant]
  9. INSULIN [Concomitant]

REACTIONS (2)
  - ABASIA [None]
  - LIGAMENT INJURY [None]
